FAERS Safety Report 6441133-8 (Version None)
Quarter: 2009Q4

REPORT INFORMATION
  Report Type: 
  Country: None (occurrence: None)
  Receive Date: 20091116
  Receipt Date: 20091001
  Transmission Date: 20100525
  Serious: No
  Sender: FDA-Public Use
  Company Number: US-BAYER-200935847NA

PATIENT
  Age: 60 Year
  Sex: Female
  Weight: 54 kg

DRUGS (2)
  1. ULTRAVIST 300 [Suspect]
     Indication: COMPUTERISED TOMOGRAM ABDOMEN
     Dosage: TOTAL DAILY DOSE: 100 ML  UNIT DOSE: 100 ML
     Route: 042
     Dates: start: 20090930, end: 20090930
  2. UNKNOWN CONTRAST [Concomitant]
     Route: 048
     Dates: start: 20090930, end: 20090930

REACTIONS (3)
  - EYE SWELLING [None]
  - SNEEZING [None]
  - URTICARIA [None]
